FAERS Safety Report 11604279 (Version 1)
Quarter: 2015Q4

REPORT INFORMATION
  Report Type: Spontaneous
  Country: US (occurrence: None)
  Receive Date: 20151006
  Receipt Date: 20151006
  Transmission Date: 20160304
  Serious: No
  Sender: FDA-Public Use
  Company Number: None

PATIENT
  Age: 69 Year
  Sex: Male
  Weight: 97.52 kg

DRUGS (8)
  1. VOLTARIN [Concomitant]
  2. GUIAFENESIN [Concomitant]
     Active Substance: GUAIFENESIN
  3. LEVAQUIN [Suspect]
     Active Substance: LEVOFLOXACIN
     Indication: UPPER RESPIRATORY TRACT INFECTION
     Dosage: 500?1 PILL PER DAY-10 DAYS?ONCE?MONTH
     Route: 048
     Dates: start: 20150406, end: 20150411
  4. SIMVASTATIN. [Concomitant]
     Active Substance: SIMVASTATIN
  5. VITAMIN D [Concomitant]
     Active Substance: CHOLECALCIFEROL
  6. CENTURUM [Concomitant]
  7. ASPIRIN. [Concomitant]
     Active Substance: ASPIRIN
  8. TRAMADAL HCL [Concomitant]

REACTIONS (5)
  - Gait disturbance [None]
  - Quality of life decreased [None]
  - Pain in extremity [None]
  - Arthralgia [None]
  - Tendon rupture [None]
